FAERS Safety Report 10454484 (Version 1)
Quarter: 2014Q3

REPORT INFORMATION
  Report Type: Spontaneous
  Country: US (occurrence: US)
  Receive Date: 20140915
  Receipt Date: 20140915
  Transmission Date: 20150326
  Serious: No
  Sender: FDA-Public Use
  Company Number: US-BRISTOL-MYERS SQUIBB COMPANY-19601285

PATIENT
  Age: 59 Year
  Sex: Female

DRUGS (1)
  1. ONGLYZA [Suspect]
     Active Substance: SAXAGLIPTIN HYDROCHLORIDE

REACTIONS (6)
  - Nausea [Unknown]
  - Bladder pain [Unknown]
  - Joint stiffness [Unknown]
  - Vision blurred [Unknown]
  - Ear pain [Unknown]
  - Fatigue [Unknown]
